FAERS Safety Report 6786623-3 (Version None)
Quarter: 2010Q2

REPORT INFORMATION
  Report Type: 
  Country: None (occurrence: None)
  Receive Date: 20100623
  Receipt Date: 20100614
  Transmission Date: 20101027
  Serious: Yes (Hospitalization, Other)
  Sender: FDA-Public Use
  Company Number: US-ELI_LILLY_AND_COMPANY-US201006003864

PATIENT
  Sex: Female
  Weight: 98.413 kg

DRUGS (18)
  1. BYETTA [Suspect]
     Indication: TYPE 2 DIABETES MELLITUS
     Dosage: 5 UG, 2/D
     Dates: start: 20080101, end: 20080101
  2. BYETTA [Suspect]
     Dosage: 10 UG, 2/D
     Dates: start: 20080101
  3. BYETTA [Suspect]
     Dosage: 10 UG, 2/D
     Dates: start: 20080101
  4. BYETTA [Suspect]
     Dosage: 10 UG, 2/D
     Dates: start: 20080101
  5. STARLIX [Concomitant]
     Indication: TYPE 2 DIABETES MELLITUS
     Dosage: 30 MG, 3/D
  6. SYNTHROID [Concomitant]
     Dosage: 15 MG, DAILY (1/D)
  7. FUROSEMIDE [Concomitant]
     Dosage: 40 MG, DAILY (1/D)
  8. TEKTURNA                           /01763601/ [Concomitant]
     Indication: BLOOD PRESSURE
     Dosage: 150 MG, DAILY (1/D)
  9. KLOR-CON [Concomitant]
     Indication: ELECTROLYTE SUBSTITUTION THERAPY
     Dosage: 150 MG, DAILY (1/D)
  10. LEXAPRO [Concomitant]
     Indication: DEPRESSION
     Dosage: 10 MG, DAILY (1/D)
  11. COLESTIPOL HYDROCHLORIDE [Concomitant]
     Indication: BLOOD CHOLESTEROL
     Dosage: 1 G, DAILY (1/D)
  12. SOTALOL HCL [Concomitant]
     Indication: CARDIAC DISORDER
     Dosage: 120 MG, 2/D
  13. LISINOPRIL [Concomitant]
     Indication: BLOOD PRESSURE
     Dosage: 40 MG, DAILY (1/D)
  14. AMLODIPINE [Concomitant]
     Indication: BLOOD PRESSURE
     Dosage: 10 MG, DAILY (1/D)
  15. PANTOPRAZOLE [Concomitant]
     Indication: REFLUX OESOPHAGITIS
     Dosage: 40 MG, UNKNOWN
  16. VITAMIN B-12 [Concomitant]
  17. VITAMIN D [Concomitant]
     Indication: VITAMIN D DECREASED
     Dates: end: 20100101
  18. ASPIRIN [Concomitant]
     Indication: HEADACHE
     Dosage: 81 MG, DAILY (1/D)

REACTIONS (10)
  - AORTIC ANEURYSM [None]
  - ATRIAL FIBRILLATION [None]
  - EPISTAXIS [None]
  - HUNGER [None]
  - LABORATORY TEST ABNORMAL [None]
  - LOSS OF CONSCIOUSNESS [None]
  - MOUTH HAEMORRHAGE [None]
  - NAUSEA [None]
  - VOMITING [None]
  - WEIGHT DECREASED [None]
